FAERS Safety Report 8790216 (Version 2)
Quarter: 2012Q4

REPORT INFORMATION
  Report Type: 
  Country: AU (occurrence: AU)
  Receive Date: 20120917
  Receipt Date: 20121005
  Transmission Date: 20130627
  Serious: Yes (Death)
  Sender: FDA-Public Use
  Company Number: AU-B.I. PHARMACEUTICALS,INC./RIDGEFIELD-2012-AU-01607AU

PATIENT
  Age: 79 Year
  Sex: Male

DRUGS (9)
  1. PRADAXA [Suspect]
     Indication: CEREBROVASCULAR ACCIDENT PROPHYLAXIS
     Dosage: 220 mg
     Dates: start: 20110819
  2. PRADAXA [Suspect]
     Indication: ATRIAL FIBRILLATION
  3. CARVEDILOL [Concomitant]
     Dosage: 25 mg
  4. SPIRONOLACTONE [Concomitant]
     Dosage: 50 mg
  5. ATORVASTATIN [Concomitant]
     Dosage: 40 mg
  6. LEXAPRO [Concomitant]
     Dosage: 10 mg
  7. CALTRATE [Concomitant]
  8. SPIRIVA [Concomitant]
  9. VENTOLIN [Concomitant]

REACTIONS (1)
  - Death [Fatal]
